FAERS Safety Report 4818074-2 (Version None)
Quarter: 2005Q4

REPORT INFORMATION
  Report Type: 
  Country: None (occurrence: None)
  Receive Date: 20051101
  Receipt Date: 20051101
  Transmission Date: 20060501
  Serious: Yes (Disabling, Congenital Anomaly)
  Sender: FDA-Public Use
  Company Number: None

PATIENT
  Age: 44 Year
  Sex: Female
  Weight: 56.6996 kg

DRUGS (2)
  1. POLYGRIP FIXODENT DENTURES ADHESIVES [Suspect]
     Route: 004
  2. . [Concomitant]

REACTIONS (1)
  - DRUG HYPERSENSITIVITY [None]
